FAERS Safety Report 10881306 (Version 1)
Quarter: 2015Q1

REPORT INFORMATION
  Report Type: Spontaneous
  Country: US (occurrence: US)
  Receive Date: 20150303
  Receipt Date: 20150303
  Transmission Date: 20150721
  Serious: Yes (Death)
  Sender: FDA-Public Use
  Company Number: US-BANPHARM-20153586

PATIENT
  Age: 49 Year
  Sex: Female

DRUGS (10)
  1. OXYCODONE [Suspect]
     Active Substance: OXYCODONE
  2. DIPHENHYDRAMINE UNKNOWN PRODUCT [Suspect]
     Active Substance: DIPHENHYDRAMINE
  3. COCAINE [Suspect]
     Active Substance: COCAINE
  4. METOCLOPRAMIDE. [Suspect]
     Active Substance: METOCLOPRAMIDE
  5. HYDROCODONE [Suspect]
     Active Substance: HYDROCODONE
  6. FENTANYL. [Suspect]
     Active Substance: FENTANYL
  7. METHADONE [Suspect]
     Active Substance: METHADONE HYDROCHLORIDE
  8. ACETAMINOPHEN. [Suspect]
     Active Substance: ACETAMINOPHEN
  9. MORPHINE [Suspect]
     Active Substance: MORPHINE
  10. DIAZEPAM. [Suspect]
     Active Substance: DIAZEPAM

REACTIONS (1)
  - Drug abuse [Fatal]
